FAERS Safety Report 8862585 (Version 1)
Quarter: 2012Q4

REPORT INFORMATION
  Report Type: 
  Country: DE (occurrence: DE)
  Receive Date: 20121026
  Receipt Date: 20121026
  Transmission Date: 20130627
  Serious: Yes (Other)
  Sender: FDA-Public Use
  Company Number: DE-GENZYME-THYM-1003452

PATIENT

DRUGS (1)
  1. THYMOGLOBULINE [Suspect]
     Indication: ORGAN TRANSPLANT
     Dosage: UNK
     Route: 065

REACTIONS (3)
  - Graft loss [Unknown]
  - Hypotension [Unknown]
  - Hypersensitivity [Unknown]
